FAERS Safety Report 6733997-5 (Version None)
Quarter: 2010Q2

REPORT INFORMATION
  Report Type: 
  Country: None (occurrence: None)
  Receive Date: 20100520
  Receipt Date: 20100516
  Transmission Date: 20101027
  Serious: Yes (Death)
  Sender: FDA-Public Use
  Company Number: JP-BAYER-200811906BYL

PATIENT
  Age: 64 Year
  Sex: Male

DRUGS (12)
  1. NEXAVAR [Suspect]
     Indication: RENAL CELL CARCINOMA
     Dosage: TOTAL DAILY DOSE: 800 MG  UNIT DOSE: 200 MG
     Route: 048
     Dates: start: 20080421, end: 20080819
  2. TWINLINE [Concomitant]
     Indication: DEHYDRATION
     Dosage: TOTAL DAILY DOSE: 400 ML  UNIT DOSE: 400 ML
     Route: 048
     Dates: start: 20080502, end: 20080520
  3. TWINLINE [Concomitant]
     Dosage: TOTAL DAILY DOSE: 400 ML  UNIT DOSE: 400 ML
     Route: 048
     Dates: start: 20080813, end: 20080819
  4. NAPROXEN [Concomitant]
     Dosage: TOTAL DAILY DOSE: 100 MG  UNIT DOSE: 100 MG
     Route: 048
     Dates: start: 20080502, end: 20080520
  5. MAGMITT [Concomitant]
     Dosage: TOTAL DAILY DOSE: 990 MG  UNIT DOSE: 330 MG
     Route: 048
     Dates: start: 20080813, end: 20080819
  6. MAGMITT [Concomitant]
     Dosage: TOTAL DAILY DOSE: 990 MG  UNIT DOSE: 330 MG
     Route: 048
     Dates: start: 20080502, end: 20080520
  7. PROCHLORPERAZINE [Concomitant]
     Dosage: TOTAL DAILY DOSE: 15 MG  UNIT DOSE: 5 MG
     Route: 048
     Dates: start: 20080502, end: 20080515
  8. LENDORMIN [Concomitant]
     Dosage: TOTAL DAILY DOSE: 0.25 MG  UNIT DOSE: 0.25 MG
     Route: 048
     Dates: start: 20080502, end: 20080520
  9. FAMOTIDINE [Concomitant]
     Indication: GASTRITIS
     Dosage: TOTAL DAILY DOSE: 20 MG  UNIT DOSE: 10 MG
     Route: 048
     Dates: start: 20080813, end: 20080819
  10. FAMOTIDINE [Concomitant]
     Dosage: TOTAL DAILY DOSE: 20 MG  UNIT DOSE: 10 MG
     Route: 048
     Dates: start: 20080510, end: 20080520
  11. VOLTAREN [Concomitant]
     Indication: PAIN
     Dosage: UNIT DOSE: 50 MG
     Route: 054
     Dates: start: 20080509, end: 20080509
  12. NAUZELIN [Concomitant]
     Indication: PAIN
     Dosage: UNIT DOSE: 60 MG
     Route: 054
     Dates: start: 20080509, end: 20080509

REACTIONS (5)
  - ECZEMA [None]
  - MYOCARDITIS [None]
  - PALMAR-PLANTAR ERYTHRODYSAESTHESIA SYNDROME [None]
  - PNEUMONIA [None]
  - RENAL CELL CARCINOMA [None]
